FAERS Safety Report 7241554-X (Version None)
Quarter: 2011Q1

REPORT INFORMATION
  Report Type: 
  Country: None (occurrence: None)
  Receive Date: 20110119
  Receipt Date: 20110119
  Transmission Date: 20110831
  Serious: Yes (Life-Threatening, Disabling, Other)
  Sender: FDA-Public Use
  Company Number: None

PATIENT
  Age: 59 Year
  Sex: Female
  Weight: 92.5338 kg

DRUGS (1)
  1. TRIAD ALCOHOL PREP PAD TRIAD [Suspect]

REACTIONS (6)
  - SKIN DISCOLOURATION [None]
  - OEDEMA PERIPHERAL [None]
  - INFECTION [None]
  - PRODUCT QUALITY ISSUE [None]
  - HYPERSENSITIVITY [None]
  - INJECTION SITE URTICARIA [None]
